FAERS Safety Report 6217774-X (Version None)
Quarter: 2009Q2

REPORT INFORMATION
  Report Type: 
  Country: None (occurrence: None)
  Receive Date: 20090608
  Receipt Date: 20090506
  Transmission Date: 20091009
  Serious: No
  Sender: FDA-Public Use
  Company Number: US-BAYER-200920047NA

PATIENT
  Age: 14 Year
  Sex: Male

DRUGS (4)
  1. AVELOX [Suspect]
     Indication: SINUSITIS
  2. FLAGYL [Concomitant]
     Dates: start: 20090301
  3. MEROPENEM [Concomitant]
     Dates: start: 20090301
  4. VANCOMYCIN HCL [Concomitant]
     Indication: MENINGITIS STREPTOCOCCAL

REACTIONS (1)
  - URTICARIA [None]
